FAERS Safety Report 7732289-5 (Version None)
Quarter: 2011Q3

REPORT INFORMATION
  Report Type: 
  Country: None (occurrence: None)
  Receive Date: 20110906
  Receipt Date: 20110824
  Transmission Date: 20111222
  Serious: No
  Sender: FDA-Public Use
  Company Number: US-AMGEN-USASP2011043410

PATIENT
  Age: 68 Year
  Sex: Male

DRUGS (2)
  1. XGEVA [Suspect]
     Dosage: UNK
  2. XGEVA [Suspect]
     Indication: METASTASES TO BONE
     Dosage: 120 UNK, UNK
     Route: 042

REACTIONS (1)
  - INCORRECT ROUTE OF DRUG ADMINISTRATION [None]
